FAERS Safety Report 6860365-8 (Version None)
Quarter: 2010Q3

REPORT INFORMATION
  Report Type: 
  Country: None (occurrence: None)
  Receive Date: 20100720
  Receipt Date: 20100706
  Transmission Date: 20110219
  Serious: Yes (Death)
  Sender: FDA-Public Use
  Company Number: DE-ROCHE-585779

PATIENT
  Sex: Female
  Weight: 70 kg

DRUGS (2)
  1. BEVACIZUMAB [Suspect]
     Indication: NON-SMALL CELL LUNG CANCER
     Dosage: THERAPY PERMANENTLY DISCONTINUED
     Route: 042
     Dates: start: 20080805, end: 20080909
  2. ERLOTINIB [Suspect]
     Indication: NON-SMALL CELL LUNG CANCER
     Dosage: THERAPY TEMPORARILY INTERRUPTED
     Route: 048
     Dates: start: 20080805, end: 20080829

REACTIONS (1)
  - PULMONARY EMBOLISM [None]
